FAERS Safety Report 22133148 (Version 1)
Quarter: 2023Q1

REPORT INFORMATION
  Report Type: Spontaneous
  Country: CN (occurrence: CN)
  Receive Date: 20230324
  Receipt Date: 20230324
  Transmission Date: 20230418
  Serious: Yes (Other)
  Sender: FDA-Public Use
  Company Number: CN-STRIDES ARCOLAB LIMITED-2023SP004255

PATIENT
  Age: 36 Year
  Sex: Female

DRUGS (17)
  1. CYCLOSPORINE [Suspect]
     Active Substance: CYCLOSPORINE
     Indication: Prophylaxis against graft versus host disease
     Dosage: UNK
     Route: 065
  2. PREDNISOLONE [Suspect]
     Active Substance: PREDNISOLONE
     Indication: Prophylaxis against graft versus host disease
     Dosage: UNK
     Route: 065
  3. PREDNISOLONE [Suspect]
     Active Substance: PREDNISOLONE
     Indication: Lichen sclerosus
     Dosage: UNK (AS TREATMENT)
     Route: 065
  4. PREDNISOLONE [Suspect]
     Active Substance: PREDNISOLONE
     Indication: Lichen planus
  5. PREDNISOLONE [Suspect]
     Active Substance: PREDNISOLONE
     Indication: Chronic graft versus host disease
  6. DASATINIB [Suspect]
     Active Substance: DASATINIB
     Indication: Prophylaxis against graft versus host disease
     Dosage: UNK (DASATINIB TREATMENT WAS DISCONTINUED TEMPORARILY FIRST)
     Route: 065
  7. DASATINIB [Suspect]
     Active Substance: DASATINIB
     Dosage: UNK (THEN RE-INITIATED)
     Route: 065
  8. HYDROXYUREA [Suspect]
     Active Substance: HYDROXYUREA
     Indication: Acute lymphocytic leukaemia
     Dosage: UNK (CONDITIONING REGIMEN)
     Route: 065
  9. HYDROXYUREA [Suspect]
     Active Substance: HYDROXYUREA
     Indication: Allogenic stem cell transplantation
  10. CYTARABINE [Suspect]
     Active Substance: CYTARABINE
     Indication: Acute lymphocytic leukaemia
     Dosage: UNK (CONDITIONING REGIMEN)
     Route: 065
  11. CYTARABINE [Suspect]
     Active Substance: CYTARABINE
     Indication: Allogenic stem cell transplantation
  12. BUSULFAN [Suspect]
     Active Substance: BUSULFAN
     Indication: Acute lymphocytic leukaemia
     Dosage: UNK (CONDITIONING REGIMEN)
     Route: 065
  13. BUSULFAN [Suspect]
     Active Substance: BUSULFAN
     Indication: Allogenic stem cell transplantation
  14. CYCLOPHOSPHAMIDE [Suspect]
     Active Substance: CYCLOPHOSPHAMIDE
     Indication: Acute lymphocytic leukaemia
     Dosage: UNK (CONDITIONING REGIMEN)
     Route: 065
  15. CYCLOPHOSPHAMIDE [Suspect]
     Active Substance: CYCLOPHOSPHAMIDE
     Indication: Allogenic stem cell transplantation
  16. SEMUSTINE [Suspect]
     Active Substance: SEMUSTINE
     Indication: Acute lymphocytic leukaemia
     Dosage: UNK (CONDITIONING REGIMEN)
     Route: 065
  17. SEMUSTINE [Suspect]
     Active Substance: SEMUSTINE
     Indication: Allogenic stem cell transplantation

REACTIONS (4)
  - Lichen sclerosus [Unknown]
  - Lichen planus [Unknown]
  - Herpes zoster [Unknown]
  - Chronic graft versus host disease [Unknown]
